FAERS Safety Report 5128056-1 (Version None)
Quarter: 2006Q4

REPORT INFORMATION
  Report Type: 
  Country: None (occurrence: None)
  Receive Date: 20061010
  Receipt Date: 20060926
  Transmission Date: 20070319
  Serious: Yes (Other)
  Sender: FDA-Public Use
  Company Number: 2006117145

PATIENT
  Age: 71 Year
  Sex: Female

DRUGS (10)
  1. NEURONTIN [Suspect]
     Indication: NEUROPATHY
     Dosage: 1800 MG (600 MG, 3 IN1 D), ORAL
     Route: 048
     Dates: start: 20060901, end: 20060901
  2. ALL OTHER THERAPEUTIC PRODUCTS [Concomitant]
  3. LEVOTHYROXINE SODIUM [Concomitant]
  4. LOPRESSOR [Concomitant]
  5. GLUCOSAMINE (GLUCOSAMINE) [Concomitant]
  6. VITAMIN E [Concomitant]
  7. FESTAL (PANCREAS EXTRACT) [Concomitant]
  8. PLAVIX [Concomitant]
  9. CALCIUM (CALCIUM) [Concomitant]
  10. FOLIC ACID [Concomitant]

REACTIONS (4)
  - CEREBRAL CYST [None]
  - CONDITION AGGRAVATED [None]
  - NEUTROPENIA [None]
  - WHITE BLOOD CELL COUNT DECREASED [None]
